FAERS Safety Report 10197476 (Version 1)
Quarter: 2014Q2

REPORT INFORMATION
  Report Type: Spontaneous
  Country: JP (occurrence: JP)
  Receive Date: 20140527
  Receipt Date: 20140527
  Transmission Date: 20141212
  Serious: Yes (Death)
  Sender: FDA-Public Use
  Company Number: PHHY2014JP060259

PATIENT
  Age: 69 Year
  Sex: Female

DRUGS (1)
  1. CEFEPIME HYDROCHLORIDE SANDOZ [Suspect]
     Dosage: 1 G, UNK
     Route: 042
     Dates: start: 201304, end: 201304

REACTIONS (1)
  - Anaphylactoid shock [Fatal]
